FAERS Safety Report 18753802 (Version 2)
Quarter: 2021Q1

REPORT INFORMATION
  Report Type: Report from Study
  Country: None (occurrence: US)
  Receive Date: 20210118
  Receipt Date: 20210307
  Transmission Date: 20210419
  Serious: Yes (Hospitalization)
  Sender: FDA-Public Use
  Company Number: US-ABBVIE-21K-163-3733308-00

PATIENT
  Sex: Female
  Weight: 63.56 kg

DRUGS (2)
  1. HUMIRA [Suspect]
     Active Substance: ADALIMUMAB
     Indication: RHEUMATOID ARTHRITIS
     Dosage: CITRATE FREE
     Route: 058
  2. SYNTHROID [Concomitant]
     Active Substance: LEVOTHYROXINE SODIUM
     Indication: PRODUCT USED FOR UNKNOWN INDICATION

REACTIONS (5)
  - Serositis [Unknown]
  - Transfusion [Unknown]
  - Abdominal adhesions [Unknown]
  - Diverticulitis intestinal perforated [Unknown]
  - Sigmoidectomy [Unknown]
